FAERS Safety Report 6298432-2 (Version None)
Quarter: 2009Q3

REPORT INFORMATION
  Report Type: 
  Country: None (occurrence: None)
  Receive Date: 20090805
  Receipt Date: 20090724
  Transmission Date: 20100115
  Serious: Yes (Hospitalization, Disabling, Other)
  Sender: FDA-Public Use
  Company Number: US-ELI_LILLY_AND_COMPANY-US200906003761

PATIENT
  Sex: Female
  Weight: 68.027 kg

DRUGS (24)
  1. ZYPREXA [Suspect]
     Indication: MIGRAINE
     Dosage: 5 MG, DAILY (1/D)
  2. ZYPREXA [Suspect]
     Dosage: 20 MG, DAILY (1/D)
  3. ZYPREXA [Suspect]
     Dosage: 10 MG, UNK
     Dates: start: 20030101
  4. ZYPREXA [Suspect]
     Dosage: 15 MG, UNK
     Dates: start: 20040101
  5. MINOCYCLINE HCL [Concomitant]
     Indication: SKIN DISORDER
     Dosage: 50 UG, DAILY (1/D)
  6. LORATADINE [Concomitant]
     Indication: MULTIPLE ALLERGIES
     Dosage: 10 MG, DAILY (1/D)
  7. IMITREX [Concomitant]
     Indication: MIGRAINE
     Dosage: 50 MG, AS NEEDED
  8. DICYCLOMINE [Concomitant]
     Indication: IRRITABLE BOWEL SYNDROME
     Dosage: 20 MG, 4/D
  9. ALBUTEROL [Concomitant]
     Indication: ASTHMA
     Dosage: UNK, AS NEEDED
  10. AMITRIPTYLINE HCL [Concomitant]
     Indication: MIGRAINE
     Dosage: 50 MG, DAILY (1/D)
  11. PROTONIX [Concomitant]
     Indication: ABDOMINAL PAIN UPPER
     Dosage: 40 MG, DAILY (1/D)
  12. POTASSIUM CHLORIDE [Concomitant]
     Indication: BLOOD POTASSIUM
     Dosage: 10 MEQ, DAILY (1/D)
  13. ACETAMINOPHEN AND HYDROCODONE BITARTRATE [Concomitant]
     Indication: MIGRAINE
     Dosage: 1 D/F, 4/D
  14. PROMETHAZINE [Concomitant]
     Indication: NAUSEA
     Dosage: 25 MG, 6 TIMES PER DAY
  15. ESTRADIOL [Concomitant]
     Indication: HORMONE REPLACEMENT THERAPY
     Dosage: 1 MG, 2/D
  16. PROPRANOLOL [Concomitant]
     Indication: TREMOR
     Dosage: 20 MG, 2/D
  17. PHENERGAN [Concomitant]
     Indication: NAUSEA
     Dosage: 25 MG, AS NEEDED
  18. METHOCARBAMOL [Concomitant]
     Indication: MUSCLE RELAXANT THERAPY
     Dosage: 500 MG, 2/D
  19. IMITREX [Concomitant]
     Dosage: 100 MG, AS NEEDED
  20. TRILEPTAL [Concomitant]
     Indication: BIPOLAR DISORDER
     Dosage: 150 MG, 7 PER DAY
  21. METOCLOPRAMIDE [Concomitant]
     Indication: NAUSEA
     Dosage: 10 MG, 6 TIMES PER DAY
  22. LEXAPRO [Concomitant]
     Indication: BIPOLAR DISORDER
     Dosage: 10 MG, DAILY (1/D)
  23. LORAZEPAM [Concomitant]
     Indication: ANXIETY
     Dosage: 1 MG, 2/D
  24. AMBIEN [Concomitant]
     Indication: INSOMNIA
     Dosage: 10 MG, DAILY (1/D)

REACTIONS (10)
  - ABASIA [None]
  - AMNESIA [None]
  - APHASIA [None]
  - BLOOD GLUCOSE DECREASED [None]
  - BRAIN INJURY [None]
  - COMA [None]
  - CONVULSION [None]
  - DYSPHAGIA [None]
  - MYALGIA [None]
  - OFF LABEL USE [None]
